FAERS Safety Report 5530104-1 (Version None)
Quarter: 2007Q4

REPORT INFORMATION
  Report Type: 
  Country: None (occurrence: None)
  Receive Date: 20071130
  Receipt Date: 20071121
  Transmission Date: 20080405
  Serious: Yes (Hospitalization)
  Sender: FDA-Public Use
  Company Number: PHBS2007JP19552

PATIENT
  Age: 11 Year
  Sex: Male

DRUGS (1)
  1. CYCLOSPORINE [Suspect]
     Route: 065

REACTIONS (3)
  - ABDOMINAL SYMPTOM [None]
  - C-REACTIVE PROTEIN INCREASED [None]
  - STOMATITIS [None]
